FAERS Safety Report 6471959-6 (Version None)
Quarter: 2009Q4

REPORT INFORMATION
  Report Type: 
  Country: None (occurrence: None)
  Receive Date: 20091203
  Receipt Date: 20080410
  Transmission Date: 20100525
  Serious: Yes (Other)
  Sender: FDA-Public Use
  Company Number: US-ELI_LILLY_AND_COMPANY-US200804003179

PATIENT
  Sex: Female
  Weight: 63.492 kg

DRUGS (3)
  1. BYETTA [Suspect]
     Dosage: UNK, UNKNOWN
     Dates: start: 20070101
  2. ACTOS [Concomitant]
     Dosage: UNK, UNKNOWN
  3. ANTI-DIABETICS [Concomitant]
     Dosage: UNK, UNKNOWN

REACTIONS (2)
  - MYOCARDIAL INFARCTION [None]
  - WEIGHT DECREASED [None]
